FAERS Safety Report 9891263 (Version 1)
Quarter: 2014Q1

REPORT INFORMATION
  Report Type: Spontaneous
  Country: US (occurrence: US)
  Receive Date: 20140212
  Receipt Date: 20140212
  Transmission Date: 20141002
  Serious: Yes (Other)
  Sender: FDA-Public Use
  Company Number: US-MALLINCKRODT-T201401152

PATIENT
  Age: 61 Year
  Sex: Male

DRUGS (4)
  1. METHADOSE [Suspect]
     Indication: PAIN
     Dosage: UNK
     Route: 065
  2. ROXICODONE [Suspect]
     Indication: PAIN
     Dosage: FIVE TIMES/DAY
     Route: 065
  3. NARDIL [Suspect]
     Indication: DEPRESSION
     Dosage: 45 MG, QD
     Route: 065
  4. NARDIL [Suspect]
     Dosage: 75 MG, QD
     Route: 065
     Dates: start: 1991

REACTIONS (1)
  - Road traffic accident [Unknown]
